FAERS Safety Report 4518115-6 (Version None)
Quarter: 2004Q4

REPORT INFORMATION
  Report Type: 
  Country: None (occurrence: None)
  Receive Date: 20041130
  Receipt Date: 20041124
  Transmission Date: 20050328
  Serious: Yes (Other)
  Sender: FDA-Public Use
  Company Number: FRWYE230724NOV04

PATIENT
  Age: 14 Year
  Sex: Female

DRUGS (1)
  1. MINOCIN [Suspect]
     Indication: ACNE
     Route: 048
     Dates: start: 20040801

REACTIONS (6)
  - ANTINUCLEAR ANTIBODY POSITIVE [None]
  - ARTHRALGIA [None]
  - CREATININE RENAL CLEARANCE DECREASED [None]
  - IRON DEFICIENCY ANAEMIA [None]
  - LUPUS-LIKE SYNDROME [None]
  - RED BLOOD CELL SEDIMENTATION RATE INCREASED [None]
